FAERS Safety Report 7658686-4 (Version None)
Quarter: 2011Q3

REPORT INFORMATION
  Report Type: 
  Country: None (occurrence: None)
  Receive Date: 20110805
  Receipt Date: 20110722
  Transmission Date: 20111222
  Serious: Yes (Hospitalization)
  Sender: FDA-Public Use
  Company Number: FR-SANOFI-AVENTIS-2011SA046896

PATIENT
  Age: 89 Year
  Sex: Male
  Weight: 43 kg

DRUGS (4)
  1. RIMIFON [Suspect]
     Indication: PULMONARY TUBERCULOSIS
     Route: 048
     Dates: start: 20100921, end: 20101023
  2. RIFADIN [Suspect]
     Indication: PULMONARY TUBERCULOSIS
     Route: 048
     Dates: start: 20100720, end: 20101023
  3. RIFATER [Concomitant]
     Route: 048
     Dates: start: 20100720, end: 20100920
  4. MYAMBUTOL [Concomitant]
     Indication: PULMONARY TUBERCULOSIS
     Route: 048
     Dates: start: 20100720, end: 20100920

REACTIONS (3)
  - CYTOLYTIC HEPATITIS [None]
  - TONIC CONVULSION [None]
  - BLOOD BILIRUBIN INCREASED [None]
